FAERS Safety Report 15729363 (Version 1)
Quarter: 2018Q4

REPORT INFORMATION
  Report Type: Spontaneous
  Country: ES (occurrence: ES)
  Receive Date: 20181217
  Receipt Date: 20181217
  Transmission Date: 20190205
  Serious: Yes (Death)
  Sender: FDA-Public Use
  Company Number: ES-ELI_LILLY_AND_COMPANY-15466535

PATIENT
  Age: 53 Year
  Sex: Female

DRUGS (3)
  1. FLUORO URACIL [Suspect]
     Active Substance: FLUOROURACIL
     Indication: RECTAL ADENOCARCINOMA
     Dosage: FLUOROURACILO FERRER FARMA 5OMG/ML 1 VI SQL EFG (50 MILLIGRAM/MILLILITERS)
     Route: 042
     Dates: start: 20100723
  2. CETUXIMAB. [Suspect]
     Active Substance: CETUXIMAB
     Indication: RECTAL ADENOCARCINOMA
     Dosage: STRENGTH:5 MG/ML,1 VIAL 20 ML PERFUSION
     Route: 065
     Dates: start: 20100723, end: 20101015
  3. OXALIPLATIN. [Suspect]
     Active Substance: OXALIPLATIN
     Indication: RECTAL ADENOCARCINOMA
     Dosage: OXALIPLATINO HOSPIRA 5 MG/ML CONCENTRADO PARA SOLUCION PARA PERFUSION (5  MILLIGRAM/MILLILITERS)
     Route: 042
     Dates: start: 20100723, end: 20101015

REACTIONS (2)
  - Neutropenia [Fatal]
  - Sepsis [Fatal]

NARRATIVE: CASE EVENT DATE: 20101010
